FAERS Safety Report 19165242 (Version 2)
Quarter: 2021Q2

REPORT INFORMATION
  Report Type: Spontaneous
  Country: LT (occurrence: LT)
  Receive Date: 20210421
  Receipt Date: 20210427
  Transmission Date: 20210717
  Serious: No
  Sender: FDA-Public Use
  Company Number: NVSC2021LT087657

PATIENT
  Age: 32 Year
  Sex: Female

DRUGS (5)
  1. L?THYROXINE [Suspect]
     Active Substance: LEVOTHYROXINE
     Indication: PRODUCT USED FOR UNKNOWN INDICATION
     Dosage: 75 UG, QD
     Route: 048
  2. ACICLOVIR [Suspect]
     Active Substance: ACYCLOVIR
     Dosage: 800 MG, 5QD (1 TABLET 5 TIMES PER DAY)
     Route: 048
  3. ACICLOVIR [Suspect]
     Active Substance: ACYCLOVIR
     Indication: VARICELLA ZOSTER VIRUS INFECTION
     Dosage: 750 MG, ONCE/SINGLE
     Route: 042
  4. OXYTOCIN. [Suspect]
     Active Substance: OXYTOCIN
     Indication: ABNORMAL LABOUR
     Dosage: UNK (IN SMALL DOSE SCHEME)
     Route: 042
  5. PETHIDINUM [Suspect]
     Active Substance: MEPERIDINE
     Indication: LABOUR PAIN
     Dosage: 100 MG, ONCE/SINGLE
     Route: 030

REACTIONS (1)
  - Maternal exposure during pregnancy [Unknown]

NARRATIVE: CASE EVENT DATE: 20201107
